FAERS Safety Report 24578040 (Version 1)
Quarter: 2024Q4

REPORT INFORMATION
  Report Type: Spontaneous
  Country: JP (occurrence: JP)
  Receive Date: 20241104
  Receipt Date: 20241104
  Transmission Date: 20250115
  Serious: Yes (Other)
  Sender: NOVARTIS
  Company Number: JP-002147023-NVSJ2022JP092894

PATIENT
  Age: 75 Year
  Sex: Male

DRUGS (2)
  1. BEOVU [Suspect]
     Active Substance: BROLUCIZUMAB-DBLL
     Indication: Choroidal neovascularisation
     Dosage: 6 MG
     Route: 031
  2. BEOVU [Suspect]
     Active Substance: BROLUCIZUMAB-DBLL
     Indication: Neovascular age-related macular degeneration

REACTIONS (6)
  - Vitritis [Recovering/Resolving]
  - Retinal occlusive vasculitis [Recovering/Resolving]
  - Visual acuity reduced transiently [Recovered/Resolved]
  - Choroidal neovascularisation [Recovered/Resolved]
  - Disease recurrence [Recovered/Resolved]
  - Iritis [Recovering/Resolving]
